FAERS Safety Report 8356866-6 (Version None)
Quarter: 2012Q2

REPORT INFORMATION
  Report Type: 
  Country: None (occurrence: None)
  Receive Date: 20120514
  Receipt Date: 20090727
  Transmission Date: 20120825
  Serious: No
  Sender: FDA-Public Use
  Company Number: US-TEVA-2009009010

PATIENT
  Sex: Female
  Weight: 83.99 kg

DRUGS (4)
  1. TREANDA [Suspect]
     Indication: CHRONIC LYMPHOCYTIC LEUKAEMIA
     Route: 041
     Dates: start: 20090711
  2. DILANTIN [Concomitant]
     Indication: CONVULSION
  3. KEPPRA [Concomitant]
     Indication: CONVULSION
  4. PRILOSEC [Concomitant]
     Indication: GASTROOESOPHAGEAL REFLUX DISEASE

REACTIONS (3)
  - DIZZINESS [None]
  - CONFUSIONAL STATE [None]
  - DECREASED APPETITE [None]
